FAERS Safety Report 14609651 (Version 1)
Quarter: 2018Q1

REPORT INFORMATION
  Report Type: Spontaneous
  Country: JP (occurrence: JP)
  Receive Date: 20180307
  Receipt Date: 20180307
  Transmission Date: 20180509
  Serious: Yes (Other)
  Sender: FDA-Public Use
  Company Number: JP-BAYER-2017-247382

PATIENT
  Sex: Male

DRUGS (1)
  1. STIVARGA [Suspect]
     Active Substance: REGORAFENIB
     Indication: COLORECTAL CANCER
     Dosage: 120 MG, QD, 3 WEEKS ON, 1 WEEK OFF
     Route: 048
     Dates: start: 20170928, end: 20180126

REACTIONS (2)
  - Colon cancer [None]
  - Device related infection [Recovered/Resolved]

NARRATIVE: CASE EVENT DATE: 20171211
